FAERS Safety Report 4470041-7 (Version None)
Quarter: 2004Q3

REPORT INFORMATION
  Report Type: 
  Country: None (occurrence: None)
  Receive Date: 20040920
  Receipt Date: 20040726
  Transmission Date: 20050211
  Serious: Yes (Other)
  Sender: FDA-Public Use
  Company Number: PHEH2004US08113

PATIENT

DRUGS (1)
  1. ZOMETA [Suspect]
     Dosage: 4 MG ONE TIME PER MONTH, INTRAVENOUS
     Route: 042

REACTIONS (1)
  - OSTEONECROSIS [None]
